FAERS Safety Report 20893952 (Version 1)
Quarter: 2022Q2

REPORT INFORMATION
  Report Type: Spontaneous
  Country: US (occurrence: None)
  Receive Date: 20220527
  Receipt Date: 20220527
  Transmission Date: 20220721
  Serious: No
  Sender: FDA-Public Use
  Company Number: None

PATIENT
  Age: 82 Year
  Sex: Female

DRUGS (1)
  1. ZEJULA [Suspect]
     Active Substance: NIRAPARIB
     Indication: Fallopian tube cancer
     Dosage: 200MG DAILY ORAL?
     Route: 048
     Dates: start: 202203

REACTIONS (2)
  - Anaemia [None]
  - Haemoglobin decreased [None]

NARRATIVE: CASE EVENT DATE: 20220501
